FAERS Safety Report 25913092 (Version 1)
Quarter: 2025Q4

REPORT INFORMATION
  Report Type: Spontaneous
  Country: US (occurrence: US)
  Receive Date: 20251013
  Receipt Date: 20251013
  Transmission Date: 20260118
  Serious: No
  Sender: SANOFI AVENTIS
  Company Number: US-SA-2025SA303865

PATIENT
  Age: 61 Year
  Sex: Male

DRUGS (2)
  1. DUPIXENT [Suspect]
     Active Substance: DUPILUMAB
     Indication: Dermatitis atopic
     Dosage: 300 MG, Q10D
     Route: 058
     Dates: start: 202501
  2. ALVAIZ [Concomitant]
     Active Substance: ELTROMBOPAG CHOLINE

REACTIONS (4)
  - Anxiety [Unknown]
  - Pruritus [Unknown]
  - Drug ineffective [Unknown]
  - Inappropriate schedule of product administration [Unknown]

NARRATIVE: CASE EVENT DATE: 20250101
